FAERS Safety Report 6834739-5 (Version None)
Quarter: 2010Q3

REPORT INFORMATION
  Report Type: 
  Country: None (occurrence: None)
  Receive Date: 20100712
  Receipt Date: 20070413
  Transmission Date: 20110219
  Serious: No
  Sender: FDA-Public Use
  Company Number: US-PFIZER INC-2007030906

PATIENT
  Age: 52 Year
  Sex: Female
  Weight: 59.09 kg

DRUGS (4)
  1. CHANTIX [Suspect]
     Indication: SMOKING CESSATION THERAPY
     Dates: start: 20070401
  2. HYDROXYZINE HYDROCHLORIDE [Suspect]
     Indication: ECZEMA
  3. HYDROXYZINE HYDROCHLORIDE [Suspect]
     Indication: ANXIETY
  4. THYROID TAB [Concomitant]

REACTIONS (3)
  - CHEST PAIN [None]
  - SOMNOLENCE [None]
  - WEIGHT INCREASED [None]
